FAERS Safety Report 25468423 (Version 1)
Quarter: 2025Q2

REPORT INFORMATION
  Report Type: Spontaneous
  Country: US (occurrence: None)
  Receive Date: 20250623
  Receipt Date: 20250623
  Transmission Date: 20250716
  Serious: Yes (Life-Threatening, Other)
  Sender: ACS DOBFAR
  Company Number: US-ACS-20250338

PATIENT
  Age: 61 Year
  Sex: Male

DRUGS (3)
  1. CEFTRIAXONE [Suspect]
     Active Substance: CEFTRIAXONE
     Indication: Streptococcal bacteraemia
  2. HEPARIN [Concomitant]
     Active Substance: HEPARIN SODIUM
     Indication: Atrial fibrillation
  3. ARGATROBAN [Concomitant]
     Active Substance: ARGATROBAN
     Indication: Atrial fibrillation

REACTIONS (1)
  - Immune thrombocytopenia [Recovered/Resolved]
